FAERS Safety Report 6521581-8 (Version None)
Quarter: 2009Q4

REPORT INFORMATION
  Report Type: 
  Country: None (occurrence: None)
  Receive Date: 20091230
  Receipt Date: 20091216
  Transmission Date: 20100525
  Serious: Yes (Other)
  Sender: FDA-Public Use
  Company Number: PHHY2009MX44995

PATIENT
  Age: 20 Year
  Sex: Female

DRUGS (1)
  1. TEGRETOL [Suspect]
     Indication: CONVULSION
     Dosage: 2 TABLETS (200 MG) PER DAY
     Dates: start: 20090401

REACTIONS (3)
  - ANXIETY [None]
  - CONVULSION [None]
  - MOOD ALTERED [None]
